FAERS Safety Report 13495875 (Version 5)
Quarter: 2023Q2

REPORT INFORMATION
  Report Type: Spontaneous
  Country: US (occurrence: US)
  Receive Date: 20170428
  Receipt Date: 20230505
  Transmission Date: 20230722
  Serious: No
  Sender: FDA-Public Use
  Company Number: US-VERTEX PHARMACEUTICALS-2017-002171

PATIENT
  Age: 7 Year
  Sex: Male
  Weight: 25 kg

DRUGS (12)
  1. ORKAMBI [Suspect]
     Active Substance: IVACAFTOR\LUMACAFTOR
     Indication: Cystic fibrosis
     Dosage: 2 TABLETS (100MG/125MG), BID
     Route: 048
     Dates: start: 20170328, end: 201705
  2. ZITHROMAX [Concomitant]
     Active Substance: AZITHROMYCIN DIHYDRATE
     Dosage: 1 DF EVERY MON, WED, FRI
     Route: 048
     Dates: end: 20170501
  3. CREON [Concomitant]
     Active Substance: PANCRELIPASE AMYLASE\PANCRELIPASE LIPASE\PANCRELIPASE PROTEASE
     Dosage: 2 TABLETS WITH SNACKS AND 8 WITH MEALS
     Route: 048
     Dates: end: 20170502
  4. FLONASE [Concomitant]
     Active Substance: FLUTICASONE PROPIONATE
     Dosage: 1 SPRAY NASAL EVERY DAY (24 HOURS)
     Route: 045
     Dates: end: 20170502
  5. MIRALAX [Concomitant]
     Active Substance: POLYETHYLENE GLYCOL 3350
     Dosage: 0.5 SCOOP, QD
     Route: 048
     Dates: end: 20170501
  6. LORATADINE [Concomitant]
     Active Substance: LORATADINE
  7. PULMOZYME [Concomitant]
     Active Substance: DORNASE ALFA
     Dosage: 1 AMPOULE AT BEDTIME, INHALATION SOLUTION
     Route: 055
     Dates: end: 20170501
  8. PROTONIX [Concomitant]
     Active Substance: PANTOPRAZOLE SODIUM
     Dosage: 1 TABLET, QD
     Route: 048
     Dates: end: 20170502
  9. ALBUTEROL SULFATE [Concomitant]
     Active Substance: ALBUTEROL SULFATE
     Dosage: 2 PUFFS, BID WITH VEST AND AS NEEDED AND PRETREAT
     Route: 055
     Dates: end: 20170502
  10. DIETARY SUPPLEMENT [Concomitant]
     Active Substance: DIETARY SUPPLEMENT
     Dosage: QID (4 CANS PER DAY)
     Dates: end: 20170502
  11. CLARITIN [Concomitant]
     Active Substance: LORATADINE
     Dosage: 5 MILLILITER, BID
     Route: 048
     Dates: end: 20170502
  12. URSODIOL [Concomitant]
     Active Substance: URSODIOL
     Dosage: 1.5 ML, BID
     Route: 048

REACTIONS (2)
  - Rash papular [Recovered/Resolved]
  - Drug hypersensitivity [Not Recovered/Not Resolved]

NARRATIVE: CASE EVENT DATE: 20170401
